FAERS Safety Report 8504491-6 (Version None)
Quarter: 2012Q3

REPORT INFORMATION
  Report Type: 
  Country: None (occurrence: None)
  Receive Date: 20120711
  Receipt Date: 20120705
  Transmission Date: 20120928
  Serious: Yes (Hospitalization)
  Sender: FDA-Public Use
  Company Number: DE-ABBOTT-12P-062-0936640-00

PATIENT
  Sex: Male
  Weight: 66 kg

DRUGS (9)
  1. PREDNISONE TAB [Concomitant]
     Indication: PRODUCT USED FOR UNKNOWN INDICATION
     Dosage: 40 MG /DAY
     Dates: start: 20100420
  2. MAGNESIUM VERLA [Concomitant]
     Indication: MAGNESIUM DEFICIENCY
     Dosage: 3 TIMES A DAY NOS
     Dates: start: 20110801
  3. ACETAMINOPHEN [Concomitant]
     Indication: PRODUCT USED FOR UNKNOWN INDICATION
  4. HUMIRA [Suspect]
     Indication: CROHN'S DISEASE
     Route: 058
     Dates: start: 20100201, end: 20100401
  5. ACYCLOVIR [Concomitant]
     Indication: INFECTION
     Dates: start: 20120201
  6. ERGOCALCIFEROL [Concomitant]
     Indication: PRODUCT USED FOR UNKNOWN INDICATION
     Dosage: ONCE A DAY NOS
     Dates: start: 20110801
  7. PALLADONE [Concomitant]
     Indication: PRODUCT USED FOR UNKNOWN INDICATION
  8. COTRIM DS [Concomitant]
     Indication: PRODUCT USED FOR UNKNOWN INDICATION
     Dates: start: 20120201
  9. HYDROMORPHONE HCL [Concomitant]
     Indication: PRODUCT USED FOR UNKNOWN INDICATION

REACTIONS (2)
  - DISABILITY [None]
  - HAEMATOPOIETIC STEM CELL MOBILISATION [None]
